FAERS Safety Report 18916956 (Version 1)
Quarter: 2021Q1

REPORT INFORMATION
  Report Type: Spontaneous
  Country: US (occurrence: US)
  Receive Date: 20210219
  Receipt Date: 20210219
  Transmission Date: 20210420
  Serious: Yes (Disabling, Other)
  Sender: FDA-Public Use
  Company Number: US-009507513-2102USA006708

PATIENT
  Age: 22 Year
  Sex: Female
  Weight: 46.71 kg

DRUGS (1)
  1. NEXPLANON [Suspect]
     Active Substance: ETONOGESTREL
     Indication: CONTRACEPTION
     Dosage: 1 ROD (1 DOSAGE FORM), EVERY 3 YEARS, LEFT ARM
     Route: 059
     Dates: start: 20180912, end: 20190501

REACTIONS (6)
  - Maternal exposure before pregnancy [Unknown]
  - Back pain [Unknown]
  - Ulnar nerve injury [Not Recovered/Not Resolved]
  - Joint stiffness [Recovering/Resolving]
  - Scar [Unknown]
  - Complication of device removal [Recovered/Resolved]

NARRATIVE: CASE EVENT DATE: 20190501
